FAERS Safety Report 8581572 (Version 4)
Quarter: 2013Q4

REPORT INFORMATION
  Report Type: Spontaneous
  Country: US (occurrence: US)
  Receive Date: 20120525
  Receipt Date: 20131015
  Transmission Date: 20140711
  Serious: Yes (Life-Threatening, Hospitalization, Other)
  Sender: FDA-Public Use
  Company Number: CHPA2012US000474

PATIENT
  Age: 67 Year
  Sex: Female

DRUGS (2)
  1. MAALOX ANTACID/ANTIGAS RS LIQ COOL MINT [Suspect]
     Indication: GASTROOESOPHAGEAL REFLUX DISEASE
     Dosage: 4 TO 5 TEASPOONS DURING THE DAY, 6 TEASPOONS AT NIGHT
     Route: 048
     Dates: start: 200703, end: 20120615
  2. DRUG THERAPY NOS [Concomitant]
     Dosage: UNK, UNK

REACTIONS (9)
  - Adverse drug reaction [Recovering/Resolving]
  - Constipation [Recovering/Resolving]
  - Parkinson^s disease [Not Recovered/Not Resolved]
  - Nervousness [Not Recovered/Not Resolved]
  - Tremor [Not Recovered/Not Resolved]
  - Asthenia [Not Recovered/Not Resolved]
  - Off label use [Unknown]
  - Incorrect dose administered [Unknown]
  - Incorrect drug administration duration [Unknown]
